FAERS Safety Report 8114264-4 (Version None)
Quarter: 2012Q1

REPORT INFORMATION
  Report Type: 
  Country: None (occurrence: None)
  Receive Date: 20120206
  Receipt Date: 20120124
  Transmission Date: 20120608
  Serious: Yes (Hospitalization, Other)
  Sender: FDA-Public Use
  Company Number: US-BIOGENIDEC-2011BI047219

PATIENT
  Age: 50 Year
  Sex: Female

DRUGS (2)
  1. TYSABRI [Suspect]
     Indication: MULTIPLE SCLEROSIS
     Route: 042
     Dates: start: 20070827, end: 20111003
  2. AVONEX [Concomitant]
     Indication: MULTIPLE SCLEROSIS

REACTIONS (6)
  - PNEUMONIA KLEBSIELLA [None]
  - URINARY TRACT INFECTION [None]
  - MYCOBACTERIUM AVIUM COMPLEX INFECTION [None]
  - GASTROINTESTINAL INFLAMMATION [None]
  - CLOSTRIDIAL INFECTION [None]
  - CYTOMEGALOVIRUS COLITIS [None]
